FAERS Safety Report 9081489 (Version 1)
Quarter: 2013Q1

REPORT INFORMATION
  Report Type: Spontaneous
  Country: US (occurrence: US)
  Receive Date: 20130130
  Receipt Date: 20130130
  Transmission Date: 20140127
  Serious: Yes (Other)
  Sender: FDA-Public Use
  Company Number: US-TARO-2013P1001294

PATIENT
  Age: 84 Year
  Sex: Female

DRUGS (2)
  1. WARFARIN SODIUM [Suspect]
     Dates: start: 2011
  2. WARFARIN SODIUM [Suspect]

REACTIONS (1)
  - Macular degeneration [Not Recovered/Not Resolved]
